FAERS Safety Report 22922059 (Version 7)
Quarter: 2024Q3

REPORT INFORMATION
  Report Type: Spontaneous
  Country: JP (occurrence: JP)
  Receive Date: 20230908
  Receipt Date: 20240722
  Transmission Date: 20241016
  Serious: Yes (Death, Life-Threatening, Hospitalization, Other)
  Sender: ASTELLAS
  Company Number: JP-ASTELLAS-2023JP010071

PATIENT
  Age: 51 Year
  Sex: Male

DRUGS (4)
  1. PADCEV [Suspect]
     Active Substance: ENFORTUMAB VEDOTIN-EJFV
     Indication: Ureteric cancer
     Dosage: UNK UNK, OTHER, 3 DOSES FOLLOWED BY AN INTERRUPTION/1 CYCLE
     Route: 065
     Dates: start: 20230801, end: 20230815
  2. GEMCITABINE [Concomitant]
     Active Substance: GEMCITABINE
     Indication: Ureteric cancer
     Dosage: UNK UNK, UNKNOWN FREQ.
     Route: 065
  3. CARBOPLATIN [Concomitant]
     Active Substance: CARBOPLATIN
     Indication: Ureteric cancer
     Dosage: UNK UNK, UNKNOWN FREQ.
     Route: 065
  4. PEMBROLIZUMAB [Concomitant]
     Active Substance: PEMBROLIZUMAB
     Indication: Ureteric cancer
     Dosage: UNK UNK, UNKNOWN FREQ.
     Route: 065

REACTIONS (3)
  - Pancreatitis [Not Recovered/Not Resolved]
  - Stevens-Johnson syndrome [Fatal]
  - Hyperglycaemia [Not Recovered/Not Resolved]

NARRATIVE: CASE EVENT DATE: 20230822
